FAERS Safety Report 21312192 (Version 1)
Quarter: 2022Q3

REPORT INFORMATION
  Report Type: Spontaneous
  Country: US (occurrence: None)
  Receive Date: 20220908
  Receipt Date: 20220908
  Transmission Date: 20221027
  Serious: Yes (Hospitalization)
  Sender: FDA-Public Use
  Company Number: None

PATIENT
  Age: 37 Year
  Sex: Female

DRUGS (4)
  1. DIETARY SUPPLEMENT [Suspect]
     Active Substance: DIETARY SUPPLEMENT
  2. ALBUTEROL [Concomitant]
     Active Substance: ALBUTEROL
  3. SALMETEROL [Concomitant]
     Active Substance: SALMETEROL
  4. MINOXIDIL [Suspect]
     Active Substance: MINOXIDIL

REACTIONS (9)
  - Product name confusion [None]
  - Nausea [None]
  - Diarrhoea [None]
  - Vomiting [None]
  - Wrong product administered [None]
  - Hypotension [None]
  - Tachycardia [None]
  - Troponin increased [None]
  - Electrocardiogram T wave inversion [None]

NARRATIVE: CASE EVENT DATE: 20220901
